FAERS Safety Report 6263856-6 (Version None)
Quarter: 2009Q3

REPORT INFORMATION
  Report Type: 
  Country: None (occurrence: None)
  Receive Date: 20090710
  Receipt Date: 20090326
  Transmission Date: 20100115
  Serious: No
  Sender: FDA-Public Use
  Company Number: US-BAYER-200913012NA

PATIENT
  Sex: Female

DRUGS (2)
  1. YAZ [Suspect]
     Indication: ACNE
     Dosage: TOTAL DAILY DOSE: 1 DF
     Route: 048
  2. ANTI-ACNE PREPARATIONS FOR TOPICAL USE [Suspect]
     Indication: ACNE
     Dosage: FACE CREAM
     Route: 061

REACTIONS (1)
  - ACNE [None]
